FAERS Safety Report 20120851 (Version 3)
Quarter: 2022Q2

REPORT INFORMATION
  Report Type: Spontaneous
  Country: BR (occurrence: None)
  Receive Date: 20211127
  Receipt Date: 20220405
  Transmission Date: 20220721
  Serious: Yes (Other)
  Sender: FDA-Public Use
  Company Number: BR-ROCHE-2967534

PATIENT
  Age: 50 Year
  Sex: Female
  Weight: 45 kg

DRUGS (4)
  1. RIVOTRIL [Suspect]
     Active Substance: CLONAZEPAM
     Indication: Malaise
     Route: 048
     Dates: start: 2006
  2. RIVOTRIL [Suspect]
     Active Substance: CLONAZEPAM
     Route: 048
     Dates: start: 202106
  3. RIVOTRIL [Suspect]
     Active Substance: CLONAZEPAM
     Dosage: 2 DOSAGE FORM IN 1 DAY, FOR OVER 25 DAYS.
     Route: 048
  4. BROMAZEPAM [Concomitant]
     Active Substance: BROMAZEPAM
     Indication: Sleep disorder
     Dosage: OVER 25 YEARS.
     Route: 048

REACTIONS (22)
  - Dependence [Not Recovered/Not Resolved]
  - Malaise [Not Recovered/Not Resolved]
  - Foaming at mouth [Recovered/Resolved]
  - Hyperhidrosis [Recovered/Resolved]
  - Panic disorder [Recovering/Resolving]
  - Dizziness [Not Recovered/Not Resolved]
  - Impaired reasoning [Not Recovered/Not Resolved]
  - Rash [Not Recovered/Not Resolved]
  - Incorrect product administration duration [Unknown]
  - Off label use [Unknown]
  - Palpitations [Recovered/Resolved]
  - Palpitations [Recovered/Resolved]
  - Agoraphobia [Not Recovered/Not Resolved]
  - Head discomfort [Not Recovered/Not Resolved]
  - Memory impairment [Not Recovered/Not Resolved]
  - Dry mouth [Recovered/Resolved]
  - Dysgeusia [Recovered/Resolved]
  - Breath odour [Recovered/Resolved]
  - Weight decreased [Not Recovered/Not Resolved]
  - Weaning failure [Recovered/Resolved]
  - Asthenia [Not Recovered/Not Resolved]
  - Myalgia [Not Recovered/Not Resolved]

NARRATIVE: CASE EVENT DATE: 20210101
